FAERS Safety Report 25546870 (Version 1)
Quarter: 2025Q3

REPORT INFORMATION
  Report Type: Spontaneous
  Country: CN (occurrence: CN)
  Receive Date: 20250714
  Receipt Date: 20250714
  Transmission Date: 20251021
  Serious: No
  Sender: ALKEM
  Company Number: CN-ALKEM LABORATORIES LIMITED-CN-ALKEM-2025-02811

PATIENT
  Age: 18 Year
  Sex: Female

DRUGS (9)
  1. AMOXICILLIN [Suspect]
     Active Substance: AMOXICILLIN
     Indication: Headache
     Route: 065
  2. AMOXICILLIN [Suspect]
     Active Substance: AMOXICILLIN
     Indication: Pyrexia
  3. CEFUROXIME AXETIL [Suspect]
     Active Substance: CEFUROXIME AXETIL
     Indication: Tonsillar hypertrophy
     Route: 065
  4. FLUCONAZOLE [Suspect]
     Active Substance: FLUCONAZOLE
     Indication: Oropharyngeal candidiasis
     Route: 065
  5. FLUCONAZOLE [Suspect]
     Active Substance: FLUCONAZOLE
     Indication: Anti-infective therapy
     Dosage: 400 MILLIGRAM, QD (INFUSION)
     Route: 042
  6. FLUCONAZOLE [Suspect]
     Active Substance: FLUCONAZOLE
     Dosage: 200 MILLIGRAM, QD (INFUSION) REDUCED DOSE
     Route: 042
  7. PIPERACILLIN SODIUM\TAZOBACTAM SODIUM [Suspect]
     Active Substance: PIPERACILLIN SODIUM\TAZOBACTAM SODIUM
     Indication: Oropharyngeal candidiasis
     Dosage: 4.5 GRAM, TID (INFUSION)
     Route: 042
  8. IRON DEXTRAN [Suspect]
     Active Substance: IRON DEXTRAN
     Indication: Deficiency anaemia
     Dosage: 200 MILLIGRAM, QD
     Route: 042
  9. SODIUM BICARBONATE [Suspect]
     Active Substance: SODIUM BICARBONATE
     Indication: Oropharyngeal candidiasis
     Route: 048

REACTIONS (3)
  - Oropharyngeal candidiasis [Recovered/Resolved]
  - Exposure during pregnancy [Unknown]
  - Self-medication [Unknown]
